FAERS Safety Report 11389965 (Version 1)
Quarter: 2015Q3

REPORT INFORMATION
  Report Type: Report from Study
  Country: US (occurrence: US)
  Receive Date: 20150818
  Receipt Date: 20150818
  Transmission Date: 20151125
  Serious: No
  Sender: FDA-Public Use
  Company Number: PHEH2015US012372

PATIENT
  Sex: Male
  Weight: 72.56 kg

DRUGS (1)
  1. GILENYA [Suspect]
     Active Substance: FINGOLIMOD HYDROCHLORIDE
     Indication: MULTIPLE SCLEROSIS
     Dosage: 0.5 MG, QD
     Route: 048
     Dates: start: 20150312

REACTIONS (7)
  - Multiple sclerosis relapse [Recovering/Resolving]
  - Productive cough [Recovering/Resolving]
  - Paraesthesia [Unknown]
  - Nasal congestion [Unknown]
  - Fatigue [Unknown]
  - Nasopharyngitis [Unknown]
  - Hypoaesthesia [Unknown]
